FAERS Safety Report 4328182-0 (Version None)
Quarter: 2004Q1

REPORT INFORMATION
  Report Type: 
  Country: None (occurrence: None)
  Receive Date: 20040331
  Receipt Date: 20030806
  Transmission Date: 20041129
  Serious: Yes (Death)
  Sender: FDA-Public Use
  Company Number: FR-GLAXOSMITHKLINE-A0419778A

PATIENT
  Age: 63 Year
  Sex: Male

DRUGS (4)
  1. NAVELBINE [Suspect]
     Indication: ADENOCARCINOMA
     Dosage: 42MG PER DAY
     Route: 042
     Dates: start: 20030711, end: 20030718
  2. NEUTROGIN [Suspect]
     Dosage: 100MG PER DAY
     Route: 058
     Dates: start: 20030724, end: 20030729
  3. ROCEPHIN [Concomitant]
     Dates: start: 20030724, end: 20030728
  4. LEVOFLOXACIN [Concomitant]
     Dates: start: 20030722, end: 20030724

REACTIONS (8)
  - DYSPNOEA [None]
  - INTERSTITIAL LUNG DISEASE [None]
  - NEUTROPENIA [None]
  - OXYGEN SATURATION DECREASED [None]
  - PNEUMONIA PRIMARY ATYPICAL [None]
  - PYREXIA [None]
  - RESPIRATORY DISORDER [None]
  - WHITE BLOOD CELL COUNT DECREASED [None]
